FAERS Safety Report 5423746-5 (Version None)
Quarter: 2007Q3

REPORT INFORMATION
  Report Type: 
  Country: None (occurrence: None)
  Receive Date: 20070727
  Receipt Date: 20040629
  Transmission Date: 20080115
  Serious: Yes (Hospitalization)
  Sender: FDA-Public Use
  Company Number: THYM-10230

PATIENT
  Age: 69 Year
  Sex: Male
  Weight: 79.8331 kg

DRUGS (8)
  1. THYMOGLOBULIN [Suspect]
     Indication: RENAL TRANSPLANT
     Dosage: 100 MG
     Dates: start: 20040422, end: 20040427
  2. PROGRAF [Concomitant]
  3. SOLU-MEDROL [Concomitant]
  4. CELLCEPT [Concomitant]
  5. SULFAMETHOXAZOLE AND TRIMETHOPRIM [Concomitant]
  6. DILTIAZEM [Concomitant]
  7. SOLU-MEDROL [Concomitant]
  8. CELLCEPT [Concomitant]

REACTIONS (3)
  - NEPHROPATHY TOXIC [None]
  - RENAL TUBULAR NECROSIS [None]
  - URINE CALCIUM INCREASED [None]
